FAERS Safety Report 7900777-4 (Version None)
Quarter: 2011Q4

REPORT INFORMATION
  Report Type: 
  Country: None (occurrence: None)
  Receive Date: 20111108
  Receipt Date: 20111028
  Transmission Date: 20120403
  Serious: No
  Sender: FDA-Public Use
  Company Number: FR-ASTELLAS-2011EU007103

PATIENT
  Sex: Female
  Weight: 75 kg

DRUGS (12)
  1. ARICEPT [Concomitant]
     Dosage: 1 DF, UNKNOWN/D
     Route: 048
  2. MIRTAZAPINE [Concomitant]
     Dosage: 1 DF, UNKNOWN/D
     Route: 048
  3. AMINOPHYLLINE [Concomitant]
     Dosage: 2 DF, UNKNOWN/D
     Route: 048
  4. MODOPAR [Concomitant]
     Indication: PARKINSON'S DISEASE
     Dosage: UNK
     Route: 048
  5. ALLOPURINOL [Concomitant]
     Dosage: 1 DF, UNKNOWN/D
     Route: 048
  6. HYPERIUM [Concomitant]
     Dosage: 2 DF, UNKNOWN/D
     Route: 048
  7. LEVOTHYROXINE SODIUM [Concomitant]
     Dosage: 1 DF, UNKNOWN/D
     Route: 048
  8. SINTROM [Concomitant]
     Dosage: 1 DF, UNKNOWN/D
     Route: 048
  9. ENALAPRIL MALEATE [Concomitant]
     Dosage: 1 DF, UNKNOWN/D
     Route: 048
  10. FENOFIBRATE [Concomitant]
     Dosage: 1 DF, UNKNOWN/D
     Route: 048
  11. VESICARE [Suspect]
     Indication: POLLAKIURIA
     Dosage: 1 DF, UID/QD
     Route: 048
     Dates: start: 20110601, end: 20111001
  12. ZOLPIDEM [Concomitant]
     Dosage: 1 DF, UNKNOWN/D
     Route: 048

REACTIONS (1)
  - MALAISE [None]
